FAERS Safety Report 4980904-1 (Version None)
Quarter: 2006Q2

REPORT INFORMATION
  Report Type: 
  Country: None (occurrence: None)
  Receive Date: 20060424
  Receipt Date: 20060412
  Transmission Date: 20061013
  Serious: Yes (Hospitalization, Disabling)
  Sender: FDA-Public Use
  Company Number: US-MERCK-0604USA02713

PATIENT
  Sex: Male
  Weight: 86 kg

DRUGS (4)
  1. VIOXX [Suspect]
     Indication: ARTHRITIS
     Route: 048
     Dates: start: 19990101, end: 20040930
  2. VIOXX [Suspect]
     Route: 048
     Dates: start: 19990101, end: 20040930
  3. [THERAPY UNSPECIFIED] [Suspect]
     Route: 065
  4. TYLENOL (CAPLET) [Concomitant]
     Route: 065

REACTIONS (12)
  - ANXIETY [None]
  - ATRIAL FIBRILLATION [None]
  - BACK PAIN [None]
  - BIPOLAR DISORDER [None]
  - DIABETES MELLITUS [None]
  - DYSPNOEA [None]
  - HEART RATE IRREGULAR [None]
  - LIMB TRAUMATIC AMPUTATION [None]
  - PULMONARY THROMBOSIS [None]
  - SKIN LACERATION [None]
  - TACHYCARDIA [None]
  - THROMBOSIS [None]
